FAERS Safety Report 16655734 (Version 1)
Quarter: 2019Q3

REPORT INFORMATION
  Report Type: Spontaneous
  Country: BR (occurrence: BR)
  Receive Date: 20190801
  Receipt Date: 20190801
  Transmission Date: 20191004
  Serious: Yes (Disabling, Other)
  Sender: FDA-Public Use
  Company Number: PHHY2019BR129784

PATIENT
  Sex: Male

DRUGS (3)
  1. FORASEQ [Suspect]
     Active Substance: BUDESONIDE\FORMOTEROL FUMARATE
     Dosage: 12/400 MCG, QD (1 TIME A DAY IN THE MORNING)
     Route: 065
  2. FORASEQ [Suspect]
     Active Substance: BUDESONIDE\FORMOTEROL FUMARATE
     Indication: EMPHYSEMA
     Dosage: 12/200 MCG
     Route: 065
  3. EXELON PATCH [Suspect]
     Active Substance: RIVASTIGMINE
     Indication: DEMENTIA ALZHEIMER^S TYPE
     Dosage: 9.5 MG, QD PATCH 10 (CM2)
     Route: 062

REACTIONS (8)
  - Dyspnoea [Unknown]
  - Dementia Alzheimer^s type [Unknown]
  - Application site pruritus [Unknown]
  - Cognitive disorder [Unknown]
  - Product adhesion issue [Unknown]
  - Scratch [Unknown]
  - Device breakage [Unknown]
  - Malaise [Unknown]
